FAERS Safety Report 6313256-5 (Version None)
Quarter: 2009Q3

REPORT INFORMATION
  Report Type: 
  Country: None (occurrence: None)
  Receive Date: 20090814
  Receipt Date: 20090730
  Transmission Date: 20100115
  Serious: Yes (Hospitalization)
  Sender: FDA-Public Use
  Company Number: 001450

PATIENT
  Sex: Male

DRUGS (1)
  1. NEUPRO [Suspect]

REACTIONS (3)
  - COUGH [None]
  - INCORRECT DRUG ADMINISTRATION DURATION [None]
  - PARKINSON'S DISEASE [None]
